FAERS Safety Report 8958835 (Version 2)
Quarter: 2012Q4

REPORT INFORMATION
  Report Type: 
  Country: JP (occurrence: JP)
  Receive Date: 20121212
  Receipt Date: 20121217
  Transmission Date: 20130627
  Serious: Yes (Hospitalization)
  Sender: FDA-Public Use
  Company Number: JP-ELI_LILLY_AND_COMPANY-JP201211009335

PATIENT
  Age: 33 Year
  Sex: Female

DRUGS (7)
  1. STRATTERA [Suspect]
     Indication: ATTENTION DEFICIT/HYPERACTIVITY DISORDER
     Dosage: 10 mg, bid
     Route: 048
     Dates: start: 20120829, end: 20120911
  2. STRATTERA [Suspect]
     Dosage: 20 mg, bid
     Route: 048
     Dates: start: 20120912, end: 20120927
  3. STRATTERA [Suspect]
     Dosage: 20 mg, qd
     Route: 048
     Dates: start: 20120928, end: 20121010
  4. JZOLOFT [Concomitant]
     Dosage: 100 mg, qd
     Route: 048
     Dates: start: 20100811
  5. DEPAKENE [Concomitant]
     Dosage: 100 mg, bid
     Route: 048
     Dates: start: 20100825
  6. MEILAX [Concomitant]
     Dosage: 1 mg, qd
     Route: 048
     Dates: start: 20120321
  7. SOLANAX [Concomitant]
     Dosage: 0.4 mg, qd
     Route: 048
     Dates: start: 20120126

REACTIONS (1)
  - Alcohol poisoning [Recovered/Resolved]
